FAERS Safety Report 8619685-9 (Version None)
Quarter: 2012Q3

REPORT INFORMATION
  Report Type: 
  Country: None (occurrence: None)
  Receive Date: 20120824
  Receipt Date: 20120821
  Transmission Date: 20120928
  Serious: Yes (Other)
  Sender: FDA-Public Use
  Company Number: NL-PFIZER INC-2012205435

PATIENT
  Sex: Female

DRUGS (2)
  1. LIPITOR [Suspect]
     Dosage: 10 MG, UNK
     Dates: start: 20080101
  2. LIPITOR [Suspect]
     Dosage: 20 MG, UNK

REACTIONS (2)
  - ANORECTAL DISORDER [None]
  - GASTROINTESTINAL CARCINOMA [None]
